FAERS Safety Report 8104201-0 (Version None)
Quarter: 2012Q1

REPORT INFORMATION
  Report Type: 
  Country: None (occurrence: None)
  Receive Date: 20120201
  Receipt Date: 20120117
  Transmission Date: 20120608
  Serious: Yes (Other)
  Sender: FDA-Public Use
  Company Number: BR-WATSON-2012-01125

PATIENT
  Age: 44 Year
  Sex: Female

DRUGS (4)
  1. PREDNISONE TAB [Suspect]
     Indication: ABSCESS LIMB
  2. PREDNISONE TAB [Suspect]
     Indication: SKIN HYPERPIGMENTATION
  3. PREDNISONE TAB [Suspect]
     Indication: ONYCHOLYSIS
  4. PREDNISONE TAB [Suspect]
     Indication: ERYTHEMA
     Dosage: 10 MG, DAILY
     Route: 065

REACTIONS (4)
  - PARONYCHIA [None]
  - DRUG INEFFECTIVE [None]
  - ERYTHEMA [None]
  - DYSAESTHESIA [None]
